FAERS Safety Report 7308185-4 (Version None)
Quarter: 2011Q1

REPORT INFORMATION
  Report Type: 
  Country: None (occurrence: None)
  Receive Date: 20110223
  Receipt Date: 20110217
  Transmission Date: 20110831
  Serious: Yes (Death)
  Sender: FDA-Public Use
  Company Number: CA-ROCHE-760774

PATIENT
  Sex: Male
  Weight: 68 kg

DRUGS (4)
  1. ZOFRAN [Concomitant]
  2. PANTOLOC [Concomitant]
     Dosage: DRUG NAME:PANTALOC
  3. DECADRON [Concomitant]
  4. BEVACIZUMAB [Suspect]
     Indication: GLIOBLASTOMA
     Route: 042
     Dates: start: 20110112

REACTIONS (3)
  - DEATH [None]
  - PNEUMONIA [None]
  - ABDOMINAL PAIN [None]
